FAERS Safety Report 21214726 (Version 1)
Quarter: 2022Q3

REPORT INFORMATION
  Report Type: Report from Study
  Country: US (occurrence: US)
  Receive Date: 20220816
  Receipt Date: 20220816
  Transmission Date: 20221027
  Serious: Yes (Other)
  Sender: FDA-Public Use
  Company Number: US-ALNYLAM PHARMACEUTICALS, INC.-ALN-2022-001325

PATIENT

DRUGS (2)
  1. ONPATTRO [Suspect]
     Active Substance: PATISIRAN SODIUM
     Indication: Hereditary neuropathic amyloidosis
     Dosage: UNK UNK, Q3W
     Route: 042
     Dates: start: 20200701
  2. ONPATTRO [Suspect]
     Active Substance: PATISIRAN SODIUM
     Dosage: UNK UNK, Q3W
     Route: 042
     Dates: start: 20220720

REACTIONS (16)
  - Intervertebral disc protrusion [Unknown]
  - Hernia [Unknown]
  - Pain [Unknown]
  - Discomfort [Unknown]
  - Nausea [Unknown]
  - Vomiting [Unknown]
  - Diarrhoea [Unknown]
  - Vomiting [Unknown]
  - Unevaluable event [Unknown]
  - Sensory loss [Unknown]
  - Migraine [Unknown]
  - Product dose omission issue [Unknown]
  - Scab [Unknown]
  - Skin depigmentation [Unknown]
  - Chronic fatigue syndrome [Unknown]
  - Abdominal pain [Unknown]

NARRATIVE: CASE EVENT DATE: 20220413
